FAERS Safety Report 7995472-X (Version None)
Quarter: 2011Q4

REPORT INFORMATION
  Report Type: 
  Country: None (occurrence: None)
  Receive Date: 20111220
  Receipt Date: 20111209
  Transmission Date: 20120403
  Serious: Yes (Other)
  Sender: FDA-Public Use
  Company Number: US-BAYER-2011-053795

PATIENT
  Age: 17 Year
  Sex: Female
  Weight: 79.365 kg

DRUGS (12)
  1. CALCIUM CARBONATE [Concomitant]
     Dosage: 500 MG, BID
     Route: 048
     Dates: start: 20081101
  2. YASMIN [Suspect]
     Indication: MENSTRUATION IRREGULAR
     Dosage: UNK
     Dates: start: 20080301, end: 20080701
  3. YAZ [Suspect]
     Indication: MENSTRUATION IRREGULAR
  4. FROVA [Concomitant]
     Dosage: UNK UNK, PRN
     Dates: start: 20010101
  5. DROSPIRENONE AND ETHINYL ESTRADIOL [Suspect]
     Indication: PREMENSTRUAL SYNDROME
     Dosage: UNK
     Dates: start: 20080701, end: 20080901
  6. YAZ [Suspect]
     Indication: PREMENSTRUAL SYNDROME
     Dosage: UNK
     Dates: start: 20081001
  7. ANTIBIOTICS [Concomitant]
     Dosage: UNK UNK, PRN
     Dates: start: 20010101
  8. YASMIN [Suspect]
     Indication: PREMENSTRUAL SYNDROME
  9. FEXOFENADINE [Concomitant]
     Indication: MULTIPLE ALLERGIES
     Dosage: UNK
     Dates: start: 20000501
  10. IBUPROFEN [Concomitant]
     Dosage: UNK UNK, PRN
     Dates: start: 20010101
  11. DROSPIRENONE AND ETHINYL ESTRADIOL [Suspect]
     Indication: MENSTRUATION IRREGULAR
     Dosage: UNK
     Dates: start: 20081101, end: 20090301
  12. LEVOTHYROXINE SODIUM [Concomitant]
     Indication: THYROID DISORDER
     Dosage: UNK
     Dates: start: 20090401

REACTIONS (3)
  - CHOLECYSTITIS [None]
  - INJURY [None]
  - CHEST PAIN [None]
